FAERS Safety Report 11857606 (Version 1)
Quarter: 2015Q4

REPORT INFORMATION
  Report Type: Spontaneous
  Country: US (occurrence: None)
  Receive Date: 20151221
  Receipt Date: 20151221
  Transmission Date: 20160305
  Serious: Yes (Hospitalization)
  Sender: FDA-Public Use
  Company Number: None

PATIENT
  Age: 62 Year
  Sex: Male
  Weight: 113.4 kg

DRUGS (2)
  1. DEXTROMETHORPHAN [Concomitant]
     Active Substance: DEXTROMETHORPHAN
  2. DEXTROMETHORPHAN [Suspect]
     Active Substance: DEXTROMETHORPHAN

REACTIONS (2)
  - Drug interaction [None]
  - Serotonin syndrome [None]

NARRATIVE: CASE EVENT DATE: 20151217
